FAERS Safety Report 17459294 (Version 1)
Quarter: 2020Q1

REPORT INFORMATION
  Report Type: Spontaneous
  Country: US (occurrence: US)
  Receive Date: 20200213
  Receipt Date: 20200213
  Transmission Date: 20200409
  Serious: No
  Sender: FDA-Public Use
  Company Number: None

PATIENT
  Age: 63 Year
  Sex: Male

DRUGS (1)
  1. INLYTA [Suspect]
     Active Substance: AXITINIB
     Dosage: ?          OTHER DOSE:1 TABLET;OTHER ROUTE:OTHER?
     Dates: start: 2019

REACTIONS (2)
  - Dehydration [None]
  - Adverse drug reaction [None]

NARRATIVE: CASE EVENT DATE: 20191226
